FAERS Safety Report 6180533-0 (Version None)
Quarter: 2009Q2

REPORT INFORMATION
  Report Type: 
  Country: None (occurrence: None)
  Receive Date: 20090504
  Receipt Date: 20090504
  Transmission Date: 20091009
  Serious: No
  Sender: FDA-Public Use
  Company Number: None

PATIENT
  Sex: Female
  Weight: 58.64 kg

DRUGS (1)
  1. CHANTIX [Suspect]
     Dosage: 1 TREATMENT AS DIRECTED
     Route: 048
     Dates: start: 20080429, end: 20090504

REACTIONS (1)
  - DYSPHORIA [None]
